FAERS Safety Report 9937658 (Version 1)
Quarter: 2014Q1

REPORT INFORMATION
  Report Type: Spontaneous
  Country: US (occurrence: US)
  Receive Date: 20140303
  Receipt Date: 20140303
  Transmission Date: 20141002
  Serious: No
  Sender: FDA-Public Use
  Company Number: US-BIOGENIDEC-2014BI014745

PATIENT
  Age: 51 Year
  Sex: Female

DRUGS (5)
  1. TECFIDERA [Suspect]
     Indication: MULTIPLE SCLEROSIS
     Route: 048
  2. TECFIDERA [Suspect]
     Indication: MULTIPLE SCLEROSIS
     Route: 048
  3. LASIX [Concomitant]
  4. MACRODANTIN [Concomitant]
  5. METHADONE [Concomitant]

REACTIONS (4)
  - Heart rate increased [Unknown]
  - Local swelling [Unknown]
  - Swelling face [Unknown]
  - Flushing [Unknown]
